APPROVED DRUG PRODUCT: CLINDAMYCIN PHOSPHATE AND TRETINOIN
Active Ingredient: CLINDAMYCIN PHOSPHATE; TRETINOIN
Strength: 1.2%;0.025%
Dosage Form/Route: GEL;TOPICAL
Application: A202564 | Product #001 | TE Code: AB1
Applicant: ACTAVIS MID ATLANTIC LLC
Approved: Jun 12, 2015 | RLD: No | RS: No | Type: RX